FAERS Safety Report 20831255 (Version 2)
Quarter: 2022Q2

REPORT INFORMATION
  Report Type: Other
  Country: IT (occurrence: IT)
  Receive Date: 20220516
  Receipt Date: 20220520
  Transmission Date: 20220720
  Serious: Yes (Death, Life-Threatening, Hospitalization, Other)
  Sender: FDA-Public Use
  Company Number: IT-STADA-247459

PATIENT

DRUGS (26)
  1. MERCAPTOPURINE [Suspect]
     Active Substance: MERCAPTOPURINE
     Indication: B precursor type acute leukaemia
     Dosage: (TREATMENT PROTOCOL AIEOP2017)
     Route: 065
  2. THIOGUANINE ANHYDROUS [Suspect]
     Active Substance: THIOGUANINE ANHYDROUS
     Indication: B precursor type acute leukaemia
     Dosage: (TREATMENT PROTOCOL AIEOP2017), TIOGUANINA ASPEN
     Route: 065
  3. PREDNISOLONE [Suspect]
     Active Substance: PREDNISOLONE
     Indication: B precursor type acute leukaemia
     Dosage: (TREATMENT PROTOCOL AIEOP2017)
     Route: 065
  4. BORTEZOMIB [Suspect]
     Active Substance: BORTEZOMIB
     Indication: B precursor type acute leukaemia
     Dosage: (TREATMENT PROTOCOL AIEOP2017)
     Route: 065
  5. DOXORUBICIN [Suspect]
     Active Substance: DOXORUBICIN
     Indication: B precursor type acute leukaemia
     Dosage: (TREATMENT PROTOCOL AIEOP2017)
     Route: 065
  6. VINCRISTINE [Suspect]
     Active Substance: VINCRISTINE
     Indication: B precursor type acute leukaemia
     Dosage: (TREATMENT PROTOCOL AIEOP2017)
     Route: 065
  7. DAUNORUBICIN [Suspect]
     Active Substance: DAUNORUBICIN
     Indication: B precursor type acute leukaemia
     Dosage: (TREATMENT PROTOCOL AIEOP2017)
     Route: 065
  8. IFOSFAMIDE [Suspect]
     Active Substance: IFOSFAMIDE
     Indication: B precursor type acute leukaemia
     Dosage: (TREATMENT PROTOCOL AIEOP2017)
     Route: 065
  9. BLINATUMOMAB [Suspect]
     Active Substance: BLINATUMOMAB
     Indication: B precursor type acute leukaemia
     Dosage: (TREATMENT PROTOCOL AIEOP2017)
     Route: 065
  10. ETOPOSIDE [Suspect]
     Active Substance: ETOPOSIDE
     Indication: B precursor type acute leukaemia
     Dosage: (TREATMENT PROTOCOL AIEOP2017)
     Route: 065
  11. FLUDARABINE [Suspect]
     Active Substance: FLUDARABINE PHOSPHATE
     Indication: B precursor type acute leukaemia
     Dosage: (TREATMENT PROTOCOL AIEOP2017)
     Route: 065
  12. CYCLOPHOSPHAMIDE [Suspect]
     Active Substance: CYCLOPHOSPHAMIDE
     Indication: B precursor type acute leukaemia
     Dosage: (TREATMENT PROTOCOL AIEOP2017)
     Route: 065
  13. VINDESINE [Suspect]
     Active Substance: VINDESINE
     Indication: B precursor type acute leukaemia
     Dosage: (TREATMENT PROTOCOL AIEOP2017)
     Route: 065
  14. DEXAMETHASONE [Suspect]
     Active Substance: DEXAMETHASONE
     Indication: B precursor type acute leukaemia
     Dosage: (TREATMENT PROTOCOL AIEOP2017)
     Route: 065
  15. CYTARABINE [Suspect]
     Active Substance: CYTARABINE
     Indication: B precursor type acute leukaemia
     Dosage: (TREATMENT PROTOCOL AIEOP2017)
     Route: 065
  16. PEGASPARGASE [Suspect]
     Active Substance: PEGASPARGASE
     Indication: B precursor type acute leukaemia
     Dosage: (TREATMENT PROTOCOL AIEOP2017)
     Route: 065
  17. ASPARAGINASE ERWINIA CHRYSANTHEMI [Suspect]
     Active Substance: ASPARAGINASE ERWINIA CHRYSANTHEMI
     Indication: B precursor type acute leukaemia
     Dosage: (TREATMENT PROTOCOL AIEOP2017)
     Route: 065
  18. METHOTREXATE [Suspect]
     Active Substance: METHOTREXATE
     Indication: B precursor type acute leukaemia
     Dosage: (TREATMENT PROTOCOL AIEOP2017)
     Route: 065
  19. DOXORUBICIN [Suspect]
     Active Substance: DOXORUBICIN
     Indication: B precursor type acute leukaemia
     Dosage: (TREATMENT PROTOCOL AIEOP2017)
     Route: 065
  20. EPINEPHRINE [Concomitant]
     Active Substance: EPINEPHRINE
     Indication: Haemorrhage
     Dosage: UNK
     Route: 065
  21. SODIUM BICARBONATE [Concomitant]
     Active Substance: SODIUM BICARBONATE
     Indication: Haemorrhage
     Dosage: UNK,HYDROGEN CARBONATE
     Route: 065
  22. FOSCAVIR [Concomitant]
     Active Substance: FOSCARNET SODIUM
     Indication: Antiviral treatment
     Dosage: UNK
     Route: 065
  23. PIPERACILLIN AND TAZOBACTAM [Concomitant]
     Active Substance: PIPERACILLIN SODIUM\TAZOBACTAM SODIUM
     Indication: Antibiotic therapy
     Dosage: UNK
     Route: 065
  24. AMPHOTERICIN B [Concomitant]
     Active Substance: AMPHOTERICIN B
     Indication: Interstitial lung disease
     Dosage: 3 MG/KG, QD (DAYS 69 TO 76)
     Route: 065
  25. AMPHOTERICIN B [Concomitant]
     Active Substance: AMPHOTERICIN B
     Dosage: 6.25 MG/KG, QD
     Route: 065
  26. AMPHOTERICIN B [Concomitant]
     Active Substance: AMPHOTERICIN B
     Dosage: 5 MG/KG, QD (DAYS 77 TO 82).
     Route: 065

REACTIONS (11)
  - Drug ineffective [Fatal]
  - Pulmonary haemorrhage [Fatal]
  - Tracheitis [Fatal]
  - Aspergillus infection [Fatal]
  - Cytomegalovirus infection [Fatal]
  - Interstitial lung disease [Fatal]
  - Leukopenia [Unknown]
  - Bone marrow failure [Unknown]
  - Anaemia [Unknown]
  - Rhinovirus infection [Unknown]
  - Thrombocytopenia [Unknown]
